FAERS Safety Report 5120671-4 (Version None)
Quarter: 2006Q4

REPORT INFORMATION
  Report Type: 
  Country: None (occurrence: None)
  Receive Date: 20061003
  Receipt Date: 20061003
  Transmission Date: 20070319
  Serious: No
  Sender: FDA-Public Use
  Company Number: None

PATIENT
  Age: 33 Year
  Sex: Female

DRUGS (1)
  1. BENZOCAINE 20% SPRAY [Suspect]
     Dosage: ONECE ORAL AREA THROAT
     Route: 048
     Dates: start: 20060526

REACTIONS (1)
  - METHAEMOGLOBINAEMIA [None]
